FAERS Safety Report 23946898 (Version 1)
Quarter: 2024Q2

REPORT INFORMATION
  Report Type: Spontaneous
  Country: US (occurrence: None)
  Receive Date: 20240606
  Receipt Date: 20240606
  Transmission Date: 20240716
  Serious: Yes (Hospitalization)
  Sender: FDA-Public Use
  Company Number: None

PATIENT
  Age: 62 Year
  Sex: Female
  Weight: 54 kg

DRUGS (2)
  1. ROSUVASTATIN [Suspect]
     Active Substance: ROSUVASTATIN
     Indication: Hypercholesterolaemia
     Dosage: OTHER QUANTITY : 90 TABLET(S);?FREQUENCY : DAILY;?
     Route: 048
     Dates: start: 20240427, end: 20240524
  2. MVI [Concomitant]

REACTIONS (5)
  - Abdominal pain [None]
  - Fatigue [None]
  - Pain [None]
  - Back pain [None]
  - Pancreatitis acute [None]

NARRATIVE: CASE EVENT DATE: 20240523
